FAERS Safety Report 8035682-9 (Version None)
Quarter: 2011Q4

REPORT INFORMATION
  Report Type: 
  Country: None (occurrence: None)
  Receive Date: 20111222
  Receipt Date: 20111212
  Transmission Date: 20120403
  Serious: Yes (Hospitalization)
  Sender: FDA-Public Use
  Company Number: 2011MA017524

PATIENT
  Sex: Male
  Weight: 181.4388 kg

DRUGS (12)
  1. METFORMIN HCL [Concomitant]
  2. DIGOXIN [Suspect]
     Indication: PRODUCT USED FOR UNKNOWN INDICATION
     Dosage: 0.25 MG;QD;PO
     Dates: start: 20060717, end: 20081201
  3. BREVITAL SODIUM [Concomitant]
  4. ASPIRIN [Concomitant]
  5. COUMADIN [Concomitant]
  6. CARDIZEM [Concomitant]
  7. TOPROL-XL [Concomitant]
  8. TERAZOSIN HCL [Concomitant]
  9. POTASSIUM CHLORIDE [Concomitant]
  10. CARTIA XT [Concomitant]
  11. ATROPINE [Concomitant]
  12. HYZAAR [Concomitant]

REACTIONS (16)
  - DYSPNOEA [None]
  - OEDEMA PERIPHERAL [None]
  - ELECTROCARDIOGRAM ST-T CHANGE [None]
  - MENISCUS REMOVAL [None]
  - ATRIAL FIBRILLATION [None]
  - ESSENTIAL HYPERTENSION [None]
  - LEFT VENTRICULAR HYPERTROPHY [None]
  - JOINT SWELLING [None]
  - KNEE OPERATION [None]
  - CARDIOMEGALY [None]
  - OBESITY [None]
  - HEART RATE IRREGULAR [None]
  - MITRAL VALVE INCOMPETENCE [None]
  - SPINAL OSTEOARTHRITIS [None]
  - PAIN [None]
  - DISCOMFORT [None]
